FAERS Safety Report 4439179-4 (Version None)
Quarter: 2004Q3

REPORT INFORMATION
  Report Type: 
  Country: None (occurrence: None)
  Receive Date: 20040831
  Receipt Date: 20040816
  Transmission Date: 20050211
  Serious: Yes (Death)
  Sender: FDA-Public Use
  Company Number: 2004S1002442

PATIENT
  Age: 58 Year
  Sex: Male

DRUGS (2)
  1. CLOZAPINE [Suspect]
     Indication: SCHIZOPHRENIA
     Dosage: 25MG, TID, ORAL
     Route: 048
     Dates: start: 20010417
  2. CLOZAPINE [Suspect]
     Indication: SCHIZOPHRENIA
     Dosage: 400MG, HS, ORAL
     Route: 048
     Dates: start: 20010417

REACTIONS (1)
  - INTESTINAL OBSTRUCTION [None]
